FAERS Safety Report 5725601-X (Version None)
Quarter: 2008Q2

REPORT INFORMATION
  Report Type: 
  Country: None (occurrence: None)
  Receive Date: 20080501
  Receipt Date: 20080304
  Transmission Date: 20081010
  Serious: No
  Sender: FDA-Public Use
  Company Number: US-BOEHRINGER INGELHEIM GMBH, GERMANY-2007-BP-26157BP

PATIENT
  Sex: Male
  Weight: 86 kg

DRUGS (10)
  1. MIRAPEX [Suspect]
     Indication: RESTLESS LEGS SYNDROME
     Route: 048
     Dates: start: 20050901, end: 20070822
  2. BENAZEPRIAL [Concomitant]
     Indication: HYPERTENSION
  3. METFORMIN HCL [Concomitant]
     Indication: BLOOD GLUCOSE INCREASED
  4. POTASSIUM CHLORIDE [Concomitant]
  5. OMEPRAZOLE [Concomitant]
  6. TEMAZEPAM [Concomitant]
  7. AMILORIDE HCL AND HYDROCHLOROTHIAZIDE [Concomitant]
  8. NORVASC [Concomitant]
  9. HYTRIN [Concomitant]
  10. LASIX [Concomitant]

REACTIONS (5)
  - GAMBLING [None]
  - OBSESSIVE-COMPULSIVE DISORDER [None]
  - SLEEP DISORDER [None]
  - SOMNOLENCE [None]
  - THERAPEUTIC RESPONSE DECREASED [None]
